FAERS Safety Report 20845457 (Version 1)
Quarter: 2022Q2

REPORT INFORMATION
  Report Type: Report from Study
  Country: JP (occurrence: JP)
  Receive Date: 20220518
  Receipt Date: 20220518
  Transmission Date: 20220720
  Serious: Yes (Hospitalization)
  Sender: FDA-Public Use
  Company Number: JP-MSD-2205JPN001300J

PATIENT
  Age: 50 Year
  Sex: Male
  Weight: 106 kg

DRUGS (6)
  1. MOLNUPIRAVIR [Suspect]
     Active Substance: MOLNUPIRAVIR
     Indication: COVID-19 treatment
     Dosage: 800 MILLIGRAM, TWICE A DAY
     Route: 048
     Dates: start: 20220317, end: 20220321
  2. CODEINE [CODEINE PHOSPHATE] [Concomitant]
     Indication: COVID-19 treatment
     Dosage: UNK
     Route: 065
  3. CALONAL [Concomitant]
     Active Substance: ACETAMINOPHEN
     Indication: COVID-19 treatment
     Dosage: UNK
     Route: 065
  4. TRANSAMIN [Concomitant]
     Active Substance: TRANEXAMIC ACID
     Indication: COVID-19 treatment
     Dosage: UNK
     Route: 065
  5. REBAMIPIDE [Concomitant]
     Active Substance: REBAMIPIDE
     Indication: COVID-19 treatment
     Dosage: UNK
     Route: 065
  6. FAMOTIDINE [Concomitant]
     Active Substance: FAMOTIDINE
     Indication: COVID-19 treatment
     Dosage: UNK
     Route: 065

REACTIONS (3)
  - COVID-19 [Recovered/Resolved]
  - Drug ineffective [Unknown]
  - Product use in unapproved indication [Unknown]

NARRATIVE: CASE EVENT DATE: 20220317
